FAERS Safety Report 15797131 (Version 1)
Quarter: 2019Q1

REPORT INFORMATION
  Report Type: Spontaneous
  Country: US (occurrence: US)
  Receive Date: 20190108
  Receipt Date: 20190108
  Transmission Date: 20190417
  Serious: Yes (Other)
  Sender: FDA-Public Use
  Company Number: None

PATIENT
  Age: 46 Year
  Sex: Male
  Weight: 99 kg

DRUGS (1)
  1. VOLTAREN [Suspect]
     Active Substance: DICLOFENAC SODIUM
     Indication: PAIN IN EXTREMITY
     Dosage: ?          QUANTITY:2 GRAMS;?
     Route: 061
     Dates: start: 20190108, end: 20190108

REACTIONS (2)
  - Nervousness [None]
  - Anxiety [None]

NARRATIVE: CASE EVENT DATE: 20190108
